FAERS Safety Report 16323749 (Version 2)
Quarter: 2019Q2

REPORT INFORMATION
  Report Type: Spontaneous
  Country: US (occurrence: US)
  Receive Date: 20190517
  Receipt Date: 20190522
  Transmission Date: 20190711
  Serious: Yes (Hospitalization, Other)
  Sender: FDA-Public Use
  Company Number: US-DRREDDYS-USA/USA/19/0110178

PATIENT
  Age: 55 Year
  Sex: Male

DRUGS (5)
  1. APIXABAN [Interacting]
     Active Substance: APIXABAN
     Indication: EMBOLISM VENOUS
     Route: 048
  2. LOPINAVIR, RITONAVIR [Interacting]
     Active Substance: LOPINAVIR\RITONAVIR
     Indication: ANTIRETROVIRAL THERAPY
     Dosage: LOPINAVIR 400 MG, RITONAVIR 100 MG
     Route: 065
  3. ACETYLSALICYLIC ACID [Suspect]
     Active Substance: ASPIRIN
     Indication: PRODUCT USED FOR UNKNOWN INDICATION
     Route: 065
  4. CLOPIDOGREL BISULFATE 75 MG [Suspect]
     Active Substance: CLOPIDOGREL BISULFATE
     Indication: ANTIPLATELET THERAPY
     Route: 065
  5. ABACAVIR, LAMIVUDINE [Concomitant]
     Active Substance: ABACAVIR SULFATE\LAMIVUDINE
     Indication: ANTIRETROVIRAL THERAPY
     Dosage: ABACAVIR 600 MG/LAMIVUDINE 300 MG
     Route: 065

REACTIONS (3)
  - Procedural haemorrhage [Recovered/Resolved]
  - Drug interaction [Recovered/Resolved]
  - Haemoglobin decreased [Recovering/Resolving]
